FAERS Safety Report 12922128 (Version 2)
Quarter: 2017Q1

REPORT INFORMATION
  Report Type: Report from Study
  Country: US (occurrence: US)
  Receive Date: 20161108
  Receipt Date: 20170116
  Transmission Date: 20170428
  Serious: Yes (Other)
  Sender: FDA-Public Use
  Company Number: US-AMGEN-USASL2016154729

PATIENT
  Age: 34 Year
  Sex: Female

DRUGS (1)
  1. ENBREL [Suspect]
     Active Substance: ETANERCEPT
     Indication: PSORIATIC ARTHROPATHY
     Dosage: 50 MG, QWK
     Route: 065

REACTIONS (11)
  - Injection site inflammation [Unknown]
  - Nasopharyngitis [Unknown]
  - Fungal infection [Unknown]
  - Arthralgia [Not Recovered/Not Resolved]
  - Respiratory tract infection [Unknown]
  - Nasal congestion [Unknown]
  - Red blood cells urine positive [Unknown]
  - White blood cells urine positive [Unknown]
  - Injection site erythema [Unknown]
  - Back pain [Not Recovered/Not Resolved]
  - Injection site bruising [Unknown]
